FAERS Safety Report 7356700-7 (Version None)
Quarter: 2011Q1

REPORT INFORMATION
  Report Type: 
  Country: None (occurrence: None)
  Receive Date: 20110316
  Receipt Date: 20110311
  Transmission Date: 20110831
  Serious: Yes (Death, Other)
  Sender: FDA-Public Use
  Company Number: PHEH2008US09977

PATIENT
  Sex: Male

DRUGS (30)
  1. ZOMETA [Suspect]
     Dosage: 4 MG/100 ML
     Dates: end: 20080305
  2. VIADUR [Concomitant]
     Dosage: UNK
     Dates: start: 20050516
  3. FLONASE [Concomitant]
  4. RADIATION THERAPY [Concomitant]
     Dosage: 200 CGY/DAY FOR 6 FRACTIONS
     Dates: start: 20090616, end: 20090624
  5. LEVAQUIN [Concomitant]
  6. ZETIA [Concomitant]
  7. PREDNISONE [Concomitant]
  8. CALCIUM [Concomitant]
     Dosage: 500 MG/DAY
  9. CHEMOTHERAPEUTICS NOS [Concomitant]
  10. CELEBREX [Concomitant]
  11. GLUCOSAMINE /CHONDROITIN /MSM [Concomitant]
  12. DEPO-PROVERA [Concomitant]
  13. KETOCONAZOLE [Concomitant]
  14. DRUG THERAPY NOS [Concomitant]
  15. FISH OIL [Concomitant]
  16. LIPITOR [Concomitant]
  17. TAXOTERE [Concomitant]
     Dosage: 75 MG/KG
     Dates: start: 20070601
  18. OXYCODONE HCL [Concomitant]
  19. VITAMIN D [Concomitant]
  20. MULTIVITAMIN ^LAPPE^ [Concomitant]
  21. DASATINIB [Concomitant]
     Dosage: 100 MG/DAY
  22. LIDOCAINE W/EPINEPHRINE ^EGYT^ [Concomitant]
  23. CASODEX [Concomitant]
     Dosage: UNK
     Dates: start: 20050826, end: 20060515
  24. AVODART [Concomitant]
     Dosage: UNK
     Dates: start: 20050121, end: 20061025
  25. ZYRTEC [Concomitant]
  26. COQ10 [Concomitant]
  27. OXYGEN THERAPY [Concomitant]
  28. DEXAMETHASONE [Concomitant]
  29. HORMONES NOS [Concomitant]
  30. ZOLADEX [Concomitant]
     Dosage: UNK
     Dates: start: 19970904, end: 19990104

REACTIONS (62)
  - METASTASES TO BONE [None]
  - MYALGIA [None]
  - SWELLING [None]
  - STOMATITIS [None]
  - METASTASES TO GASTROINTESTINAL TRACT [None]
  - SEBORRHOEIC KERATOSIS [None]
  - DEATH [None]
  - ILIAC ARTERY STENOSIS [None]
  - PAIN [None]
  - GINGIVAL RECESSION [None]
  - BONE DENSITY DECREASED [None]
  - DENTAL CARIES [None]
  - ORAL PAIN [None]
  - SPINAL OSTEOARTHRITIS [None]
  - RENAL FAILURE CHRONIC [None]
  - WHITE BLOOD CELL COUNT DECREASED [None]
  - BLOOD UREA INCREASED [None]
  - ATELECTASIS [None]
  - OSTEONECROSIS OF JAW [None]
  - GENERAL PHYSICAL HEALTH DETERIORATION [None]
  - RENAL FAILURE ACUTE [None]
  - BONE PAIN [None]
  - PROSTATE CANCER [None]
  - PROSTATE CANCER METASTATIC [None]
  - NEUTROPHIL COUNT DECREASED [None]
  - LYMPHOCYTE COUNT DECREASED [None]
  - ASTIGMATISM [None]
  - METASTASES TO LYMPH NODES [None]
  - DECREASED INTEREST [None]
  - ARTHRALGIA [None]
  - RETROPERITONEAL LYMPHADENOPATHY [None]
  - ABNORMAL LOSS OF WEIGHT [None]
  - PAIN IN EXTREMITY [None]
  - LACRIMATION INCREASED [None]
  - ILEUS [None]
  - ABDOMINAL PAIN [None]
  - CONSTIPATION [None]
  - PIGMENTATION DISORDER [None]
  - DIVERTICULUM [None]
  - PULMONARY FIBROSIS [None]
  - FEMORAL ARTERIAL STENOSIS [None]
  - BLOOD GLUCOSE INCREASED [None]
  - PERIODONTITIS [None]
  - ACUTE PRERENAL FAILURE [None]
  - BONE DISORDER [None]
  - CHRONIC SINUSITIS [None]
  - RED BLOOD CELL COUNT DECREASED [None]
  - HAEMOGLOBIN DECREASED [None]
  - BLOOD TESTOSTERONE DECREASED [None]
  - MONOCYTE COUNT INCREASED [None]
  - HYDRONEPHROSIS [None]
  - ABDOMINAL MASS [None]
  - CATARACT [None]
  - OSTEOMYELITIS [None]
  - PROSTATIC SPECIFIC ANTIGEN INCREASED [None]
  - ANKLE BRACHIAL INDEX DECREASED [None]
  - EYELID INFECTION [None]
  - HAEMATOCRIT DECREASED [None]
  - ANXIETY [None]
  - RENAL MASS [None]
  - PLEURAL EFFUSION [None]
  - OSTEOPOROSIS [None]
